FAERS Safety Report 6467915-4 (Version None)
Quarter: 2009Q4

REPORT INFORMATION
  Report Type: 
  Country: None (occurrence: None)
  Receive Date: 20091127
  Receipt Date: 20091112
  Transmission Date: 20100525
  Serious: Yes (Hospitalization)
  Sender: FDA-Public Use
  Company Number: DSA_33275_2009

PATIENT
  Sex: Female

DRUGS (10)
  1. DILTIAZEM HCL (MONO-TILDIEM - TILTIAZEM HYDROCHLORIDE) [Suspect]
     Indication: DRUG USE FOR UNKNOWN INDICATION
     Dosage: DF ORAL
     Route: 048
     Dates: start: 20081220, end: 20081229
  2. ALDALIX [Concomitant]
  3. PRAVASTATINE /00880401/ [Concomitant]
  4. INIPOMP /01263201/ [Concomitant]
  5. VOLTARENE /00372302/ [Concomitant]
  6. DOMPERIDONE [Concomitant]
  7. STRUCTUM /02117803/ [Concomitant]
  8. BETASERC /00141802/ [Concomitant]
  9. STABLON /00956301/ [Concomitant]
  10. DOLIPRANE [Concomitant]

REACTIONS (2)
  - EOSINOPHILIA [None]
  - TOXIC SKIN ERUPTION [None]
